FAERS Safety Report 24409826 (Version 1)
Quarter: 2024Q4

REPORT INFORMATION
  Report Type: Spontaneous
  Country: US (occurrence: US)
  Receive Date: 20241008
  Receipt Date: 20241008
  Transmission Date: 20250114
  Serious: Yes (Hospitalization, Other)
  Sender: KALEO
  Company Number: US-Kaleo, Inc.-2023KL000057

PATIENT
  Age: 51 Year
  Sex: Female

DRUGS (1)
  1. AUVI-Q [Suspect]
     Active Substance: EPINEPHRINE
     Indication: Anaphylactic reaction
     Dosage: MULTIPLE DOSES

REACTIONS (1)
  - Lactic acidosis [Recovered/Resolved]
